FAERS Safety Report 25411150 (Version 1)
Quarter: 2025Q2

REPORT INFORMATION
  Report Type: Spontaneous
  Country: US (occurrence: US)
  Receive Date: 20250609
  Receipt Date: 20250609
  Transmission Date: 20250717
  Serious: Yes (Disabling, Other)
  Sender: Unknown Manufacturer
  Company Number: US-SPROUT PHARMACEUTICALS, INC.-2025SP000070

PATIENT
  Sex: Female

DRUGS (1)
  1. ADDYI [Suspect]
     Active Substance: FLIBANSERIN
     Indication: Product used for unknown indication
     Route: 048

REACTIONS (11)
  - Impaired work ability [Unknown]
  - Tremor [Unknown]
  - Balance disorder [Unknown]
  - Gait disturbance [Unknown]
  - Fall [Unknown]
  - Aphasia [Unknown]
  - Speech disorder [Unknown]
  - Thinking abnormal [Unknown]
  - Contusion [Unknown]
  - Malaise [Unknown]
  - Adverse reaction [Unknown]
